FAERS Safety Report 14964949 (Version 3)
Quarter: 2020Q2

REPORT INFORMATION
  Report Type: Report from Study
  Country: US (occurrence: US)
  Receive Date: 20180601
  Receipt Date: 20200612
  Transmission Date: 20200713
  Serious: Yes (Hospitalization)
  Sender: FDA-Public Use
  Company Number: US-EISAI MEDICAL RESEARCH-EC-2018-035149

PATIENT
  Age: 69 Year
  Sex: Male
  Weight: 98 kg

DRUGS (36)
  1. ONDANSETRON HCL [Concomitant]
     Active Substance: ONDANSETRON HYDROCHLORIDE
  2. AZITHROMYCIN ANHYDROUS. [Concomitant]
     Active Substance: AZITHROMYCIN ANHYDROUS
  3. MAGNESIUM [Concomitant]
     Active Substance: MAGNESIUM
  4. OMEPRAZOLE. [Concomitant]
     Active Substance: OMEPRAZOLE
  5. VITAMIN B12 [Concomitant]
     Active Substance: CYANOCOBALAMIN
  6. BENZONATATE. [Concomitant]
     Active Substance: BENZONATATE
  7. LENVIMA [Suspect]
     Active Substance: LENVATINIB
     Route: 048
     Dates: start: 2018, end: 201809
  8. FLUTICASONE PROPIONATE. [Concomitant]
     Active Substance: FLUTICASONE PROPIONATE
  9. AZELASTINE HCL [Concomitant]
     Active Substance: AZELASTINE HYDROCHLORIDE
  10. LENVIMA [Suspect]
     Active Substance: LENVATINIB
     Route: 048
     Dates: end: 201903
  11. LENVIMA [Suspect]
     Active Substance: LENVATINIB
     Route: 048
     Dates: start: 202005
  12. COQ10 [Concomitant]
     Active Substance: UBIDECARENONE
  13. LORATADINE. [Concomitant]
     Active Substance: LORATADINE
  14. MONTELUKAST SODIUM. [Concomitant]
     Active Substance: MONTELUKAST SODIUM
  15. PROCHLORPERAZINE-MALEATE [Concomitant]
  16. METHYLPREDNISOLONE. [Concomitant]
     Active Substance: METHYLPREDNISOLONE
  17. ALPRAZOLAM. [Concomitant]
     Active Substance: ALPRAZOLAM
  18. ELIQUIS [Concomitant]
     Active Substance: APIXABAN
  19. LENVIMA [Suspect]
     Active Substance: LENVATINIB
     Indication: HEPATOCELLULAR CARCINOMA
     Route: 048
     Dates: start: 2018, end: 201805
  20. METFORMIN HCL [Concomitant]
     Active Substance: METFORMIN HYDROCHLORIDE
  21. LOSARTAN POTASSIUM. [Concomitant]
     Active Substance: LOSARTAN POTASSIUM
  22. LENVIMA [Suspect]
     Active Substance: LENVATINIB
     Indication: THYROID CANCER
     Route: 048
     Dates: start: 20180109, end: 201801
  23. LENVIMA [Suspect]
     Active Substance: LENVATINIB
     Route: 048
     Dates: start: 201903
  24. LENVIMA [Suspect]
     Active Substance: LENVATINIB
     Route: 048
     Dates: start: 20200317, end: 202005
  25. TRAMADOL HCL [Concomitant]
     Active Substance: TRAMADOL HYDROCHLORIDE
  26. HYDROCODONE-ACETAMINOPHEN [Concomitant]
     Active Substance: ACETAMINOPHEN\HYDROCODONE
  27. CEFDINIR. [Concomitant]
     Active Substance: CEFDINIR
  28. EZETIMIBE/SIMVASTATIN [Concomitant]
     Active Substance: EZETIMIBE\SIMVASTATIN
  29. DIAZEPAM. [Concomitant]
     Active Substance: DIAZEPAM
  30. HYDRALAZINE [Concomitant]
     Active Substance: HYDRALAZINE HYDROCHLORIDE
  31. PROBIOTIC FORMULA [Concomitant]
  32. BACLOFEN. [Concomitant]
     Active Substance: BACLOFEN
  33. RANITIDINE HCL [Concomitant]
     Active Substance: RANITIDINE HYDROCHLORIDE
  34. SYNTHROID [Concomitant]
     Active Substance: LEVOTHYROXINE SODIUM
  35. LACTULOSE. [Concomitant]
     Active Substance: LACTULOSE
  36. ROPINIROLE. [Concomitant]
     Active Substance: ROPINIROLE

REACTIONS (22)
  - Decreased appetite [Recovering/Resolving]
  - Vision blurred [Recovering/Resolving]
  - Nausea [Unknown]
  - Cardiac disorder [Unknown]
  - Liver disorder [Recovered/Resolved]
  - Cholecystitis infective [Not Recovered/Not Resolved]
  - Pain [Unknown]
  - Diarrhoea [Recovering/Resolving]
  - Headache [Unknown]
  - Blood pressure increased [Recovered/Resolved]
  - Asthenia [Unknown]
  - Urine output decreased [Not Recovered/Not Resolved]
  - Somnolence [Unknown]
  - Weight decreased [Not Recovered/Not Resolved]
  - Hypotension [Unknown]
  - Fatigue [Recovering/Resolving]
  - Dehydration [Unknown]
  - Constipation [Unknown]
  - Fluid intake reduced [Not Recovered/Not Resolved]
  - Blood pressure fluctuation [Recovered/Resolved]
  - Transient ischaemic attack [Not Recovered/Not Resolved]
  - Heart rate increased [Recovered/Resolved]

NARRATIVE: CASE EVENT DATE: 2018
